FAERS Safety Report 9563585 (Version 1)
Quarter: 2013Q1

REPORT INFORMATION
  Report Type: Spontaneous
  Country: US (occurrence: None)
  Receive Date: 20121227
  Receipt Date: 20121227
  Transmission Date: 20140127
  Serious: Yes (Hospitalization)
  Sender: FDA-Public Use
  Company Number: PHEH2012US000528

PATIENT
  Age: 32 Year
  Sex: Female

DRUGS (2)
  1. EXJADE [Suspect]
     Indication: IRON OVERLOAD
     Route: 048
     Dates: start: 20111222
  2. EXJADE [Suspect]
     Indication: SICKLE CELL ANAEMIA
     Route: 048
     Dates: start: 20111222

REACTIONS (6)
  - Sickle cell anaemia [None]
  - Drug intolerance [None]
  - Nausea [None]
  - Vomiting [None]
  - Diarrhoea [None]
  - Dizziness [None]
